FAERS Safety Report 11622417 (Version 1)
Quarter: 2015Q4

REPORT INFORMATION
  Report Type: Spontaneous
  Country: IE (occurrence: None)
  Receive Date: 20151009
  Receipt Date: 20151009
  Transmission Date: 20160304
  Serious: Yes (Disabling)
  Sender: FDA-Public Use
  Company Number: None

PATIENT
  Age: 55 Year
  Sex: Female
  Weight: 81.65 kg

DRUGS (8)
  1. TRAMADOL. [Concomitant]
     Active Substance: TRAMADOL
  2. ATORAVASTATIN [Concomitant]
     Active Substance: ATORVASTATIN
  3. LUSTRAL [Concomitant]
     Active Substance: SERTRALINE HYDROCHLORIDE
  4. BIT D [Concomitant]
  5. PROLIA [Suspect]
     Active Substance: DENOSUMAB
     Indication: OSTEOPOROSIS
     Dosage: 6 MONTHLY
     Route: 058
  6. CALCIUM [Concomitant]
     Active Substance: CALCIUM
  7. ASA COLON RAMICOR [Concomitant]
  8. FISH OILS [Concomitant]

REACTIONS (1)
  - Exostosis [None]

NARRATIVE: CASE EVENT DATE: 20150918
